FAERS Safety Report 5956803-5 (Version None)
Quarter: 2008Q4

REPORT INFORMATION
  Report Type: 
  Country: None (occurrence: None)
  Receive Date: 20081106
  Receipt Date: 20080821
  Transmission Date: 20090506
  Serious: Yes (Life-Threatening, Hospitalization)
  Sender: FDA-Public Use
  Company Number: WAES 0808USA04158

PATIENT

DRUGS (4)
  1. MEVACOR [Suspect]
     Dosage: PO
     Route: 048
     Dates: start: 19880801
  2. ALLOPURINOL [Suspect]
  3. PREDNISONE TAB [Concomitant]
  4. THERAPY UNSPECIFIED [Concomitant]

REACTIONS (1)
  - RHABDOMYOLYSIS [None]
